FAERS Safety Report 14971279 (Version 3)
Quarter: 2018Q4

REPORT INFORMATION
  Report Type: Report from Study
  Country: US (occurrence: US)
  Receive Date: 20180604
  Receipt Date: 20181026
  Transmission Date: 20190204
  Serious: Yes (Death, Hospitalization)
  Sender: FDA-Public Use
  Company Number: US-ACTELION-A-US2016-145997

PATIENT
  Age: 71 Year
  Sex: Male
  Weight: 69.84 kg

DRUGS (7)
  1. POTASSIUM [Concomitant]
     Active Substance: POTASSIUM
  2. ADEMPAS [Concomitant]
     Active Substance: RIOCIGUAT
  3. COUMADIN [Concomitant]
     Active Substance: WARFARIN SODIUM
  4. TRACLEER [Suspect]
     Active Substance: BOSENTAN
     Indication: PULMONARY ARTERIAL HYPERTENSION
     Dosage: 125 MG, BID
     Route: 048
     Dates: start: 20140828
  5. TADALAFIL. [Concomitant]
     Active Substance: TADALAFIL
  6. ADCIRCA [Concomitant]
     Active Substance: TADALAFIL
  7. REMODULIN [Concomitant]
     Active Substance: TREPROSTINIL

REACTIONS (14)
  - Pneumonia [Unknown]
  - Diarrhoea [Unknown]
  - Housebound [Unknown]
  - Abdominal pain upper [Unknown]
  - Condition aggravated [Unknown]
  - Myocardial infarction [Unknown]
  - Dysphagia [Unknown]
  - Constipation [Unknown]
  - Death [Fatal]
  - Pain in jaw [Unknown]
  - Pulmonary arterial hypertension [Unknown]
  - Headache [Unknown]
  - Cataract [Unknown]
  - Disease progression [Unknown]

NARRATIVE: CASE EVENT DATE: 20181017
